FAERS Safety Report 9531096 (Version 1)
Quarter: 2013Q3

REPORT INFORMATION
  Report Type: Spontaneous
  Country: US (occurrence: US)
  Receive Date: 20130918
  Receipt Date: 20130918
  Transmission Date: 20140515
  Serious: Yes (Hospitalization)
  Sender: FDA-Public Use
  Company Number: US-BAYER-2013-111084

PATIENT
  Age: 18 Year
  Sex: Female

DRUGS (6)
  1. YAZ [Suspect]
  2. BENADRYL [Concomitant]
  3. COMPAZINE [Concomitant]
  4. METFORMIN [Concomitant]
     Dosage: 500 MG, UNK
  5. SPIRONOLACTONE [Concomitant]
     Dosage: 25 MG, UNK
  6. ACIPHEX [Concomitant]
     Dosage: 20 MG, UNK

REACTIONS (1)
  - Intracranial venous sinus thrombosis [Recovered/Resolved]
